FAERS Safety Report 21407031 (Version 1)
Quarter: 2022Q4

REPORT INFORMATION
  Report Type: Spontaneous
  Country: US (occurrence: US)
  Receive Date: 20221004
  Receipt Date: 20221004
  Transmission Date: 20230112
  Serious: Yes (Life-Threatening, Hospitalization)
  Sender: FDA-Public Use
  Company Number: US-MYLANLABS-2022M1110571

PATIENT
  Age: 40 Year
  Sex: Male

DRUGS (31)
  1. FENTANYL [Suspect]
     Active Substance: FENTANYL
     Indication: Lactic acidosis
     Dosage: RECEIVED VIA CENTRAL LINE
     Route: 042
  2. FENTANYL [Suspect]
     Active Substance: FENTANYL
     Indication: Respiratory acidosis
  3. FENTANYL [Suspect]
     Active Substance: FENTANYL
     Indication: Rhabdomyolysis
  4. FENTANYL [Suspect]
     Active Substance: FENTANYL
     Indication: Septic shock
  5. FENTANYL [Suspect]
     Active Substance: FENTANYL
     Indication: Ischaemic hepatitis
  6. FENTANYL [Suspect]
     Active Substance: FENTANYL
     Indication: Troponin increased
  7. FENTANYL [Suspect]
     Active Substance: FENTANYL
     Indication: Acute kidney injury
  8. NOREPINEPHRINE [Suspect]
     Active Substance: NOREPINEPHRINE
     Indication: Lactic acidosis
     Dosage: RECEIVED VIA CENTRAL LINE
     Route: 042
  9. NOREPINEPHRINE [Suspect]
     Active Substance: NOREPINEPHRINE
     Indication: Respiratory acidosis
  10. NOREPINEPHRINE [Suspect]
     Active Substance: NOREPINEPHRINE
     Indication: Rhabdomyolysis
  11. NOREPINEPHRINE [Suspect]
     Active Substance: NOREPINEPHRINE
     Indication: Septic shock
  12. NOREPINEPHRINE [Suspect]
     Active Substance: NOREPINEPHRINE
     Indication: Ischaemic hepatitis
  13. NOREPINEPHRINE [Suspect]
     Active Substance: NOREPINEPHRINE
     Indication: Troponin increased
  14. NOREPINEPHRINE [Suspect]
     Active Substance: NOREPINEPHRINE
     Indication: Acute kidney injury
  15. PIPER METHYSTICUM ROOT [Suspect]
     Active Substance: PIPER METHYSTICUM ROOT
     Indication: Product used for unknown indication
     Dosage: UNK
     Route: 048
  16. PROPOFOL [Suspect]
     Active Substance: PROPOFOL
     Indication: Lactic acidosis
     Dosage: RECEIVED VIA CENTRAL LINE
     Route: 042
  17. PROPOFOL [Suspect]
     Active Substance: PROPOFOL
     Indication: Respiratory acidosis
  18. PROPOFOL [Suspect]
     Active Substance: PROPOFOL
     Indication: Rhabdomyolysis
  19. PROPOFOL [Suspect]
     Active Substance: PROPOFOL
     Indication: Septic shock
  20. PROPOFOL [Suspect]
     Active Substance: PROPOFOL
     Indication: Ischaemic hepatitis
  21. PROPOFOL [Suspect]
     Active Substance: PROPOFOL
     Indication: Troponin increased
  22. PROPOFOL [Suspect]
     Active Substance: PROPOFOL
     Indication: Acute kidney injury
  23. VASOPRESSIN [Suspect]
     Active Substance: VASOPRESSIN
     Indication: Lactic acidosis
     Dosage: RECEIVED VIA CENTRAL LINE
     Route: 042
  24. VASOPRESSIN [Suspect]
     Active Substance: VASOPRESSIN
     Indication: Respiratory acidosis
  25. VASOPRESSIN [Suspect]
     Active Substance: VASOPRESSIN
     Indication: Rhabdomyolysis
  26. VASOPRESSIN [Suspect]
     Active Substance: VASOPRESSIN
     Indication: Septic shock
  27. VASOPRESSIN [Suspect]
     Active Substance: VASOPRESSIN
     Indication: Ischaemic hepatitis
  28. VASOPRESSIN [Suspect]
     Active Substance: VASOPRESSIN
     Indication: Troponin increased
  29. VASOPRESSIN [Suspect]
     Active Substance: VASOPRESSIN
     Indication: Acute kidney injury
  30. AMITRIPTYLINE [Concomitant]
     Active Substance: AMITRIPTYLINE
     Indication: Depression
     Dosage: UNK
     Route: 065
  31. AMITRIPTYLINE [Concomitant]
     Active Substance: AMITRIPTYLINE
     Indication: Anxiety

REACTIONS (6)
  - Drug ineffective for unapproved indication [Unknown]
  - Hypovolaemic shock [Unknown]
  - Retroperitoneal haemorrhage [Unknown]
  - Intestinal ischaemia [Unknown]
  - Ischaemic hepatitis [Unknown]
  - Off label use [Unknown]
